FAERS Safety Report 15742063 (Version 2)
Quarter: 2019Q3

REPORT INFORMATION
  Report Type: Spontaneous
  Country: RU (occurrence: RU)
  Receive Date: 20181219
  Receipt Date: 20190830
  Transmission Date: 20191004
  Serious: Yes (Other)
  Sender: FDA-Public Use
  Company Number: RU-IMPAX LABORATORIES, LLC-2018-IPXL-04215

PATIENT

DRUGS (2)
  1. METFORMIN HYDROCHLORIDE ER [Suspect]
     Active Substance: METFORMIN HYDROCHLORIDE
     Indication: TYPE 2 DIABETES MELLITUS
     Dosage: GREATER THAN OR EQUAL TO 1000 MG/DAY
     Route: 065
  2. EVOGLIPTIN [Suspect]
     Active Substance: EVOGLIPTIN
     Indication: TYPE 2 DIABETES MELLITUS
     Dosage: 5 MILLIGRAM, QD
     Route: 065

REACTIONS (1)
  - Acute myocardial infarction [Unknown]
